FAERS Safety Report 5113733-9 (Version None)
Quarter: 2006Q3

REPORT INFORMATION
  Report Type: 
  Country: None (occurrence: None)
  Receive Date: 20060921
  Receipt Date: 20060921
  Transmission Date: 20061208
  Serious: Yes (Hospitalization)
  Sender: FDA-Public Use
  Company Number: None

PATIENT
  Age: 37 Year
  Sex: Male
  Weight: 63.6 kg

DRUGS (4)
  1. DILANTIN [Suspect]
     Indication: CONVULSION
     Dosage: 100MG TID
  2. PHENOBARBITAL [Concomitant]
  3. TEGRETOL [Concomitant]
  4. ALBUTEROL [Concomitant]

REACTIONS (4)
  - DRUG LEVEL ABOVE THERAPEUTIC [None]
  - DRUG SCREEN POSITIVE [None]
  - DYSARTHRIA [None]
  - DYSTONIA [None]
